FAERS Safety Report 6819849-0 (Version None)
Quarter: 2010Q3

REPORT INFORMATION
  Report Type: 
  Country: None (occurrence: None)
  Receive Date: 20100707
  Receipt Date: 20100625
  Transmission Date: 20110219
  Serious: Yes (Other)
  Sender: FDA-Public Use
  Company Number: HQWYE303821JUL04

PATIENT
  Sex: Female

DRUGS (1)
  1. PREMPRO [Suspect]

REACTIONS (3)
  - CEREBROVASCULAR ACCIDENT [None]
  - DEMENTIA [None]
  - MITRAL VALVE PROLAPSE [None]
